FAERS Safety Report 5074251-X (Version None)
Quarter: 2006Q3

REPORT INFORMATION
  Report Type: 
  Country: None (occurrence: None)
  Receive Date: 20060714
  Receipt Date: 20060429
  Transmission Date: 20061208
  Serious: No
  Sender: FDA-Public Use
  Company Number: 2006SP001898

PATIENT
  Age: 78 Year
  Sex: Female
  Weight: 61.6892 kg

DRUGS (5)
  1. LUNESTA [Suspect]
     Indication: INSOMNIA
     Dosage: 2 MG; PRN; ORAL; SEE IMAGE
     Route: 048
     Dates: start: 20050101
  2. COREG [Concomitant]
  3. ZOLOFT [Concomitant]
  4. FOSAMAX [Concomitant]
  5. NOCTURNO [Concomitant]

REACTIONS (1)
  - INITIAL INSOMNIA [None]
